FAERS Safety Report 25478631 (Version 1)
Quarter: 2025Q2

REPORT INFORMATION
  Report Type: Spontaneous
  Country: US (occurrence: US)
  Receive Date: 20250625
  Receipt Date: 20250625
  Transmission Date: 20250716
  Serious: No
  Sender: BRISTOL-MYERS SQUIBB COMPANY
  Company Number: US-BRISTOL-MYERS SQUIBB COMPANY-2025-088839

PATIENT
  Age: 24 Year
  Sex: Male

DRUGS (2)
  1. THALIDOMIDE [Suspect]
     Active Substance: THALIDOMIDE
     Indication: Arteriovenous malformation
  2. REVLIMID [Suspect]
     Active Substance: LENALIDOMIDE
     Indication: Arteriovenous malformation

REACTIONS (2)
  - Haemorrhage [Unknown]
  - Off label use [Unknown]
